FAERS Safety Report 6220149-0 (Version None)
Quarter: 2009Q2

REPORT INFORMATION
  Report Type: 
  Country: None (occurrence: None)
  Receive Date: 20090609
  Receipt Date: 20090529
  Transmission Date: 20091009
  Serious: Yes (Other)
  Sender: FDA-Public Use
  Company Number: US-JNJCH-2009014966

PATIENT
  Age: 14 Year
  Sex: Female
  Weight: 90.7 kg

DRUGS (1)
  1. PURELL ORIGINAL [Suspect]
     Indication: INFECTION PROPHYLAXIS
     Dosage: TEXT:UNSPECIFIED
     Route: 061

REACTIONS (3)
  - BLISTER [None]
  - BURNS SECOND DEGREE [None]
  - INTENTIONAL DRUG MISUSE [None]
